FAERS Safety Report 21476237 (Version 1)
Quarter: 2022Q4

REPORT INFORMATION
  Report Type: Report from Study
  Country: US (occurrence: US)
  Receive Date: 20221019
  Receipt Date: 20221019
  Transmission Date: 20230113
  Serious: No
  Sender: FDA-Public Use
  Company Number: US-ABBVIE-4134029

PATIENT
  Sex: Male

DRUGS (1)
  1. VENCLEXTA [Suspect]
     Active Substance: VENETOCLAX
     Indication: Myelodysplastic syndrome
     Dosage: 14 DAYS ON AND 7 DAYS OFF, NUMBER 56, THREE REFILLS; FORM STRENGTH: 100 MILLIGRAM
     Route: 048

REACTIONS (2)
  - Off label use [Unknown]
  - Off label use [Unknown]
